FAERS Safety Report 22289263 (Version 1)
Quarter: 2023Q2

REPORT INFORMATION
  Report Type: Spontaneous
  Country: US (occurrence: None)
  Receive Date: 20230504
  Receipt Date: 20230504
  Transmission Date: 20230722
  Serious: Yes (Other)
  Sender: FDA-Public Use
  Company Number: None

PATIENT
  Age: 67 Year
  Sex: Female
  Weight: 118.35 kg

DRUGS (10)
  1. MOUNJARO [Suspect]
     Active Substance: TIRZEPATIDE
     Indication: Diabetes mellitus
     Dosage: OTHER QUANTITY : 1 INJECTION(S);?OTHER FREQUENCY : WEEKLY;?
     Route: 030
     Dates: start: 20221116, end: 20230427
  2. SYNTHROID [Concomitant]
     Active Substance: LEVOTHYROXINE SODIUM
  3. Triamterene-hydrochlorothiazide 75-50 mg [Concomitant]
  4. METOPROLOL [Concomitant]
     Active Substance: METOPROLOL
  5. CLONIDINE [Concomitant]
     Active Substance: CLONIDINE
  6. ALPRAZOLAM [Concomitant]
     Active Substance: ALPRAZOLAM
  7. Potassium 500mg [Concomitant]
  8. Magnesium 625mg [Concomitant]
  9. Vitamin C [Concomitant]
  10. ZINC [Concomitant]
     Active Substance: ZINC

REACTIONS (2)
  - Hypertension [None]
  - Panic attack [None]

NARRATIVE: CASE EVENT DATE: 20230427
